FAERS Safety Report 4939836-7 (Version None)
Quarter: 2006Q1

REPORT INFORMATION
  Report Type: 
  Country: None (occurrence: None)
  Receive Date: 20060307
  Receipt Date: 20060222
  Transmission Date: 20060701
  Serious: Yes (Hospitalization)
  Sender: FDA-Public Use
  Company Number: 2006025835

PATIENT
  Age: 50 Year
  Sex: Male

DRUGS (7)
  1. NEURONTIN [Suspect]
     Indication: HEMIPLEGIA
     Dosage: 1800 MG (600 MG, 3 IN 1 D), ORAL
     Route: 048
     Dates: start: 20040101
  2. ENOXAPARIN SODIUM [Concomitant]
  3. AMLODIPINE [Concomitant]
  4. ALL OTHER THERAPEUTIC PRODUCTS (ALL OTHER THERAPEUTIC PRODUCTS) [Concomitant]
  5. DIPYRONE TAB [Concomitant]
  6. TRAZODONE HCL [Concomitant]
  7. OMEPRAZOLE [Concomitant]

REACTIONS (2)
  - BURNING SENSATION [None]
  - KNEE OPERATION [None]
